FAERS Safety Report 10181390 (Version 2)
Quarter: 2014Q2

REPORT INFORMATION
  Report Type: Spontaneous
  Country: FR (occurrence: FR)
  Receive Date: 20140519
  Receipt Date: 20140526
  Transmission Date: 20141212
  Serious: Yes (Hospitalization)
  Sender: FDA-Public Use
  Company Number: FR-BRISTOL-MYERS SQUIBB COMPANY-20731675

PATIENT
  Age: 66 Year
  Sex: Male

DRUGS (8)
  1. COUMADINE [Suspect]
     Route: 048
     Dates: end: 20140204
  2. LYRICA [Concomitant]
  3. FENOFIBRATE [Concomitant]
  4. LASILIX [Concomitant]
     Dates: start: 201301
  5. PANTOPRAZOLE [Concomitant]
     Dates: start: 201301
  6. ALLOPURINOL [Concomitant]
     Dates: start: 201301, end: 2014
  7. PARACETAMOL [Concomitant]
     Dates: start: 201301
  8. XATRAL LP [Concomitant]

REACTIONS (3)
  - Large intestinal haemorrhage [Recovered/Resolved]
  - Thrombocytopenia [Recovered/Resolved]
  - Blood creatinine increased [Recovered/Resolved]
